FAERS Safety Report 19437788 (Version 1)
Quarter: 2021Q2

REPORT INFORMATION
  Report Type: Spontaneous
  Country: US (occurrence: US)
  Receive Date: 20210619
  Receipt Date: 20210619
  Transmission Date: 20210717
  Serious: No
  Sender: FDA-Public Use
  Company Number: US-NEUROCRINE BIOSCIENCES INC.-2021NBI02931

PATIENT

DRUGS (1)
  1. INGREZZA [Suspect]
     Active Substance: VALBENAZINE
     Indication: TARDIVE DYSKINESIA
     Dosage: 40 MILLIGRAM
     Route: 048

REACTIONS (5)
  - Nausea [Unknown]
  - Fatigue [Unknown]
  - Therapeutic product effect decreased [Unknown]
  - Headache [Unknown]
  - Parkinsonism [Unknown]
